FAERS Safety Report 25194855 (Version 1)
Quarter: 2025Q2

REPORT INFORMATION
  Report Type: Spontaneous
  Country: FR (occurrence: FR)
  Receive Date: 20250414
  Receipt Date: 20250414
  Transmission Date: 20250716
  Serious: Yes (Other)
  Sender: ORGANON
  Company Number: None

PATIENT
  Age: 22 Year
  Sex: Female
  Weight: 83 kg

DRUGS (4)
  1. MIRTAZAPINE [Suspect]
     Active Substance: MIRTAZAPINE
     Indication: Mixed anxiety and depressive disorder
     Dosage: 15 MG AT BEDTIME (DURATION: 1 MONTH)
     Route: 048
     Dates: start: 20250308, end: 20250324
  2. MIRTAZAPINE [Suspect]
     Active Substance: MIRTAZAPINE
     Indication: Insomnia
  3. LAMICTAL [Concomitant]
     Active Substance: LAMOTRIGINE
  4. QUETIAPINE FUMARATE [Concomitant]
     Active Substance: QUETIAPINE FUMARATE

REACTIONS (7)
  - Visual impairment [Recovering/Resolving]
  - Persecutory delusion [Recovering/Resolving]
  - Feeling drunk [Recovered/Resolved]
  - Hallucinations, mixed [Recovered/Resolved]
  - Nightmare [Recovered/Resolved]
  - Depersonalisation/derealisation disorder [Recovered/Resolved]
  - Product use in unapproved indication [Unknown]

NARRATIVE: CASE EVENT DATE: 20250308
